FAERS Safety Report 9863101 (Version 2)
Quarter: 2014Q2

REPORT INFORMATION
  Report Type: Report from Study
  Country: PT (occurrence: PT)
  Receive Date: 20140203
  Receipt Date: 20140403
  Transmission Date: 20141212
  Serious: Yes (Hospitalization, Other)
  Sender: FDA-Public Use
  Company Number: PT-ABBVIE-14P-130-1195292-00

PATIENT
  Age: 27 Year
  Sex: Male

DRUGS (5)
  1. HUMIRA [Suspect]
     Indication: CROHN^S DISEASE
     Dosage: BASELINE
     Route: 058
     Dates: start: 20091013, end: 20091013
  2. HUMIRA [Suspect]
     Dosage: WEEK 2
     Route: 058
  3. HUMIRA [Suspect]
     Route: 058
  4. PENTASA [Concomitant]
     Indication: CHEMOTHERAPY
     Dates: start: 20091013
  5. PENTASA [Concomitant]
     Indication: PROPHYLAXIS

REACTIONS (1)
  - Haemolysis [Recovered/Resolved]
